FAERS Safety Report 4599894-9 (Version None)
Quarter: 2005Q1

REPORT INFORMATION
  Report Type: 
  Country: None (occurrence: None)
  Receive Date: 20050304
  Receipt Date: 20050304
  Transmission Date: 20050727
  Serious: No
  Sender: FDA-Public Use
  Company Number: None

PATIENT
  Sex: Female

DRUGS (2)
  1. BETAPACE [Suspect]
     Indication: MYOPATHY
     Dosage: 1 1/2 TABLETS BY MOUTH TWICE DAILY
     Route: 048
  2. BETAPACE [Suspect]
     Indication: VENTRICULAR TACHYCARDIA
     Dosage: 1 1/2 TABLETS BY MOUTH TWICE DAILY
     Route: 048

REACTIONS (3)
  - ARRHYTHMIA [None]
  - CARDIOMYOPATHY [None]
  - VENTRICULAR TACHYCARDIA [None]
